FAERS Safety Report 5151662-5 (Version None)
Quarter: 2006Q4

REPORT INFORMATION
  Report Type: 
  Country: None (occurrence: None)
  Receive Date: 20061115
  Receipt Date: 20061103
  Transmission Date: 20070319
  Serious: Yes (Other)
  Sender: FDA-Public Use
  Company Number: GB-ROCHE-470222

PATIENT
  Age: 70 Year
  Sex: Male

DRUGS (4)
  1. RIBAVIRIN [Suspect]
     Indication: HEPATITIS C
     Route: 065
     Dates: start: 20050914, end: 20060703
  2. VIRAFERONPEG [Suspect]
     Indication: HEPATITIS C
     Route: 065
     Dates: start: 20050914, end: 20060703
  3. AMLODIPINE [Concomitant]
  4. ATENOLOL [Concomitant]

REACTIONS (2)
  - GYNAECOMASTIA [None]
  - PRURITUS [None]
